FAERS Safety Report 21372765 (Version 1)
Quarter: 2022Q3

REPORT INFORMATION
  Report Type: Report from Study
  Country: US (occurrence: US)
  Receive Date: 20220924
  Receipt Date: 20220924
  Transmission Date: 20221027
  Serious: Yes (Hospitalization)
  Sender: FDA-Public Use
  Company Number: US-ABBVIE-22K-163-4427257-00

PATIENT
  Sex: Male

DRUGS (23)
  1. HUMIRA [Suspect]
     Active Substance: ADALIMUMAB
     Indication: Colitis ulcerative
     Dosage: CITRATE FREE
     Route: 058
  2. 0.05 % Durezol [Concomitant]
     Indication: Product used for unknown indication
     Dosage: 1 DROP TO EYE THREE TIMES A DAY IN RIGHT EYE
  3. 100 mg Allopurinol (Allopurinol) [Concomitant]
     Indication: Product used for unknown indication
     Dosage: 1 TABLET BY MOUTH DAILY
  4. 20 mg Paroxetine HCL [Concomitant]
     Indication: Product used for unknown indication
     Dosage: TAKE 1 TABLET BY MOUTH DAILY
  5. 10 mg Simvastatin [Concomitant]
     Indication: Product used for unknown indication
     Dosage: 1 TABLET BY MOUTH DAILY
  6. 1.2 g Mesalamine [Concomitant]
     Indication: Product used for unknown indication
     Dosage: 4 TABLETS EVERY MORNING
  7. 50 mg Indomethacin [Concomitant]
     Indication: Product used for unknown indication
     Dosage: BY MOUTH THREE TIMES A DAY AS NEEDED
  8. Clindamycin phosphate (Clindamycin phosphate) [Concomitant]
     Indication: Product used for unknown indication
     Dosage: APPLY DAILY TO SCALP
  9. 1 mg Clonazepam (Clonazepam) [Concomitant]
     Indication: Product used for unknown indication
     Dosage: 1 BY MOUTH EVERY DAY
  10. LUMIGAN [Concomitant]
     Active Substance: BIMATOPROST
     Indication: Product used for unknown indication
     Dosage: 1 QTT BOTH EYES DAILY
  11. 0.4 mg Tamsulosin HCL [Concomitant]
     Indication: Product used for unknown indication
     Dosage: TAKE 1 CAPSULE BY MOUTH DAILY AT BEDTIME
  12. Cholestyramine light (Colestyramine) [Concomitant]
     Indication: Product used for unknown indication
     Dosage: 1 PACKET DAILY AS NEEDED
  13. DEVICE [Suspect]
     Active Substance: DEVICE
  14. PREDNISONE [Concomitant]
     Active Substance: PREDNISONE
     Indication: Product used for unknown indication
     Dosage: 2 TABLETS BY MOUTH EVERY MORNING
  15. PREDNISONE [Concomitant]
     Active Substance: PREDNISONE
     Indication: Product used for unknown indication
     Dosage: 2 TABLETS BY MOUTH EVERY MORNING
  16. Cyclobenzaprine HCL 5 mg [Concomitant]
     Indication: Product used for unknown indication
     Dosage: 1 BY MOUTH THREE TIMES A DAY AS NEEDED
  17. CANNABIDIOL\HERBALS [Concomitant]
     Active Substance: CANNABIDIOL\HERBALS
     Indication: Product used for unknown indication
     Dosage: PRN
  18. 125 mg Vancomycin HCL [Concomitant]
     Indication: Clostridium difficile colitis
     Dosage: 1 CAP BY MOUTH FOUR TIMES A DAY FOR 10 DAYS
     Dates: start: 20220906
  19. FLUTICASONE PROPIONATE [Concomitant]
     Active Substance: FLUTICASONE PROPIONATE
     Indication: Product used for unknown indication
     Dosage: ACT 2 SPRAYS EACH NOSTRIL ONCE DAILY
  20. 10 mg Montelukast sodium [Concomitant]
     Indication: Product used for unknown indication
     Dosage: 1 BY MOUTH AT BEDTIME PLACE ON AUTOREFILL
  21. 20 mg Omeprazole [Concomitant]
     Indication: Product used for unknown indication
     Dosage: 1 BY MOUTH EVERY DAY
  22. 5 mg Amlodipine besylate [Concomitant]
     Indication: Product used for unknown indication
     Dosage: 1 TABLET BY MOUTH DAILY
  23. MODERNA COVID-19 VACCINE [Concomitant]
     Active Substance: ELASOMERAN
     Indication: COVID-19 immunisation
     Route: 030

REACTIONS (4)
  - Fall [Recovering/Resolving]
  - Weight decreased [Unknown]
  - Clostridium difficile colitis [Unknown]
  - Diarrhoea [Unknown]

NARRATIVE: CASE EVENT DATE: 20220101
